FAERS Safety Report 5180391-7 (Version None)
Quarter: 2006Q4

REPORT INFORMATION
  Report Type: 
  Country: None (occurrence: None)
  Receive Date: 20060919
  Receipt Date: 20060714
  Transmission Date: 20070319
  Serious: No
  Sender: FDA-Public Use
  Company Number: 2006US001593

PATIENT
  Age: 51 Year
  Sex: Female

DRUGS (3)
  1. VESICARE [Suspect]
     Indication: HYPERTONIC BLADDER
     Dosage: 5 MG, ORAL
     Route: 048
     Dates: start: 20060703, end: 20060710
  2. ALLEGRA [Concomitant]
  3. NECON (ETHINYLESTRADIOL, NORETHITERONE) [Concomitant]

REACTIONS (2)
  - ANHIDROSIS [None]
  - DIZZINESS [None]
